FAERS Safety Report 9345503 (Version 2)
Quarter: 2013Q3

REPORT INFORMATION
  Report Type: Report from Study
  Country: BR (occurrence: BR)
  Receive Date: 20130613
  Receipt Date: 20130716
  Transmission Date: 20140515
  Serious: Yes (Hospitalization)
  Sender: FDA-Public Use
  Company Number: BR-ROCHE-1160542

PATIENT
  Sex: Female
  Weight: 77 kg

DRUGS (2)
  1. TOCILIZUMAB [Suspect]
     Indication: RHEUMATOID ARTHRITIS
     Dosage: PATIENT RECEIVED 4 INFUSION OF TOCILIZUMAB
     Route: 042
     Dates: start: 20120117
  2. PANTOPRAZOLE [Concomitant]

REACTIONS (4)
  - Malaise [Recovered/Resolved]
  - Anaemia [Not Recovered/Not Resolved]
  - Influenza [Not Recovered/Not Resolved]
  - Ulcer [Not Recovered/Not Resolved]
